FAERS Safety Report 9635956 (Version 2)
Quarter: 2013Q4

REPORT INFORMATION
  Report Type: Spontaneous
  Country: US (occurrence: US)
  Receive Date: 20131021
  Receipt Date: 20131021
  Transmission Date: 20140711
  Serious: Yes (Hospitalization, Other)
  Sender: FDA-Public Use
  Company Number: US-CELGENEUS-163-20785-13083644

PATIENT
  Sex: Male

DRUGS (5)
  1. THALOMID [Suspect]
     Indication: PLASMA CELL MYELOMA
     Dosage: 100 MILLIGRAM
     Route: 048
     Dates: start: 200811
  2. THALOMID [Suspect]
     Dosage: 150 MILLIGRAM
     Route: 048
     Dates: start: 200904
  3. THALOMID [Suspect]
     Dosage: 100 MILLIGRAM
     Route: 048
     Dates: start: 200906
  4. PAIN MEDICATIONS [Suspect]
     Indication: PAIN
     Route: 065
  5. PAIN MEDICATIONS [Suspect]
     Dosage: REDUCED DOSE
     Route: 065

REACTIONS (3)
  - Compression fracture [Unknown]
  - Hyperkalaemia [Unknown]
  - Confusional state [Unknown]
